FAERS Safety Report 9247258 (Version 1)
Quarter: 2013Q2

REPORT INFORMATION
  Report Type: Spontaneous
  Country: US (occurrence: US)
  Receive Date: 20130423
  Receipt Date: 20130423
  Transmission Date: 20140414
  Serious: No
  Sender: FDA-Public Use
  Company Number: US-BIOGENIDEC-2013BI036453

PATIENT
  Age: 47 Year
  Sex: Female

DRUGS (2)
  1. TYSABRI [Suspect]
     Indication: MULTIPLE SCLEROSIS
     Route: 042
     Dates: start: 20130304
  2. BENADRYL [Concomitant]
     Indication: PREMEDICATION
     Dates: start: 2013

REACTIONS (5)
  - Band sensation [Recovered/Resolved]
  - Abdominal pain upper [Recovered/Resolved]
  - Blister [Unknown]
  - Urticaria [Unknown]
  - Pruritus [Unknown]
